FAERS Safety Report 14175553 (Version 4)
Quarter: 2018Q1

REPORT INFORMATION
  Report Type: Spontaneous
  Country: US (occurrence: US)
  Receive Date: 20171109
  Receipt Date: 20180329
  Transmission Date: 20180508
  Serious: Yes (Other)
  Sender: FDA-Public Use
  Company Number: US-ALLERGAN-1706765US

PATIENT
  Age: 67 Year
  Sex: Female
  Weight: 86.17 kg

DRUGS (4)
  1. COMBIGAN [Suspect]
     Active Substance: BRIMONIDINE TARTRATE\TIMOLOL MALEATE
     Indication: DRY EYE
     Dosage: 2 GTT, BID
     Route: 047
     Dates: start: 20170307
  2. COMBIGAN [Suspect]
     Active Substance: BRIMONIDINE TARTRATE\TIMOLOL MALEATE
     Indication: GLAUCOMA
     Dosage: 2 GTT, BID
     Route: 047
     Dates: end: 20170218
  3. XALATAN [Concomitant]
     Active Substance: LATANOPROST
     Indication: GLAUCOMA
     Dosage: UNK
  4. TRAVATAN [Concomitant]
     Active Substance: TRAVOPROST
     Route: 047

REACTIONS (10)
  - Pyrexia [Recovered/Resolved]
  - Eyelids pruritus [Not Recovered/Not Resolved]
  - Eye irritation [Not Recovered/Not Resolved]
  - Drug dose omission [Unknown]
  - Intraocular pressure increased [Not Recovered/Not Resolved]
  - Influenza [Recovered/Resolved]
  - Somnolence [Not Recovered/Not Resolved]
  - Eye pruritus [Not Recovered/Not Resolved]
  - Off label use [Unknown]
  - Dry eye [Not Recovered/Not Resolved]

NARRATIVE: CASE EVENT DATE: 2008
